FAERS Safety Report 10524765 (Version 1)
Quarter: 2014Q4

REPORT INFORMATION
  Report Type: Spontaneous
  Country: US (occurrence: US)
  Receive Date: 20141017
  Receipt Date: 20141017
  Transmission Date: 20150528
  Serious: No
  Sender: FDA-Public Use
  Company Number: US-PFIZER INC-2014284321

PATIENT
  Age: 76 Year
  Sex: Female
  Weight: 54.42 kg

DRUGS (1)
  1. LYRICA [Suspect]
     Active Substance: PREGABALIN
     Indication: NEURALGIA
     Dosage: 50 MG, 2X/DAY
     Dates: start: 201409

REACTIONS (5)
  - Pyrexia [Unknown]
  - Asthenia [Unknown]
  - Influenza like illness [Recovering/Resolving]
  - Myalgia [Unknown]
  - Chills [Unknown]

NARRATIVE: CASE EVENT DATE: 201410
